FAERS Safety Report 6762399-0 (Version None)
Quarter: 2010Q2

REPORT INFORMATION
  Report Type: 
  Country: None (occurrence: None)
  Receive Date: 20100609
  Receipt Date: 20100531
  Transmission Date: 20101027
  Serious: Yes (Hospitalization, Other)
  Sender: FDA-Public Use
  Company Number: GR-ROCHE-706887

PATIENT
  Age: 65 Year
  Sex: Male

DRUGS (2)
  1. XELODA [Suspect]
     Indication: COLON CANCER
     Dosage: 2000MG/M2 DIVIDED IN TWO DOSES FOR 14 DAYS IN CYCLE OF 21 DAYS.
     Route: 065
  2. OXALIPLATIN [Suspect]
     Indication: COLON CANCER
     Dosage: CYCLE OF 21 DAYS
     Route: 065

REACTIONS (8)
  - DIARRHOEA [None]
  - DYSPNOEA [None]
  - EYELID PTOSIS [None]
  - HYPOCALCAEMIA [None]
  - HYPOKALAEMIA [None]
  - HYPOMAGNESAEMIA [None]
  - LARYNGOSPASM [None]
  - TACHYCARDIA [None]
